FAERS Safety Report 6743634-1 (Version None)
Quarter: 2010Q2

REPORT INFORMATION
  Report Type: 
  Country: None (occurrence: None)
  Receive Date: 20100527
  Receipt Date: 20100519
  Transmission Date: 20101027
  Serious: Yes (Hospitalization)
  Sender: FDA-Public Use
  Company Number: HK-JNJFOC-20100508738

PATIENT
  Sex: Male

DRUGS (2)
  1. REMICADE [Suspect]
     Indication: RHEUMATOID ARTHRITIS
     Dosage: 2ND DOSE
     Route: 041
  2. REMICADE [Suspect]
     Dosage: 2ND DOSE
     Route: 041

REACTIONS (2)
  - INFUSION RELATED REACTION [None]
  - VOMITING [None]
